FAERS Safety Report 12087877 (Version 1)
Quarter: 2016Q1

REPORT INFORMATION
  Report Type: Spontaneous
  Country: US (occurrence: US)
  Receive Date: 20160217
  Receipt Date: 20160217
  Transmission Date: 20160526
  Serious: No
  Sender: FDA-Public Use
  Company Number: US-ALLERGAN-1519525US

PATIENT
  Sex: Male

DRUGS (4)
  1. RESTASIS [Suspect]
     Active Substance: CYCLOSPORINE
     Indication: DRY EYE
     Dosage: 2 GTT, BID
     Route: 047
     Dates: start: 201503, end: 20150918
  2. TAMSULOSIN [Concomitant]
     Active Substance: TAMSULOSIN
     Indication: PROSTATOMEGALY
  3. FISH OIL [Concomitant]
     Active Substance: FISH OIL
     Indication: SUPPLEMENTATION THERAPY
  4. SYSTANE BALANCE [Concomitant]
     Active Substance: PROPYLENE GLYCOL

REACTIONS (3)
  - Eye pruritus [Recovered/Resolved]
  - Foreign body sensation in eyes [Recovered/Resolved]
  - Lacrimation increased [Recovering/Resolving]
